FAERS Safety Report 6120525-0 (Version None)
Quarter: 2009Q1

REPORT INFORMATION
  Report Type: 
  Country: None (occurrence: None)
  Receive Date: 20090316
  Receipt Date: 20090316
  Transmission Date: 20090719
  Serious: No
  Sender: FDA-Public Use
  Company Number: None

PATIENT
  Age: 49 Year
  Sex: Female

DRUGS (2)
  1. PROZAC [Suspect]
     Indication: DEPRESSION
     Dosage: 4-1-08 - 5-7-08
     Dates: start: 20080401, end: 20080507
  2. LEXAPRO [Suspect]
     Indication: ANXIETY
     Dosage: 3-12-08 - 4-2-08
     Dates: start: 20080312, end: 20080402

REACTIONS (2)
  - EPISTAXIS [None]
  - URTICARIA [None]
